FAERS Safety Report 5270175-3 (Version None)
Quarter: 2007Q1

REPORT INFORMATION
  Report Type: 
  Country: None (occurrence: None)
  Receive Date: 20070320
  Receipt Date: 20070308
  Transmission Date: 20070707
  Serious: Yes (Other)
  Sender: FDA-Public Use
  Company Number: US-ROCHE-477968

PATIENT
  Age: 61 Year
  Sex: Female
  Weight: 91.6 kg

DRUGS (16)
  1. BONIVA [Suspect]
     Indication: DRUG USE FOR UNKNOWN INDICATION
     Dosage: ONLY ONE DOSE.
     Route: 048
     Dates: start: 20061203
  2. LIBRAX [Concomitant]
     Dosage: REPORTED DOSAGE: 52.5.
     Route: 048
  3. ELAVIL [Concomitant]
     Route: 048
  4. CELEXA [Concomitant]
     Route: 048
  5. POTASSIUM CHLORIDE [Concomitant]
     Route: 048
  6. ARTHROTEC [Concomitant]
     Dosage: REPORTED DOSAGE: 75/2.
     Route: 048
  7. NEXIUM [Concomitant]
     Route: 048
  8. INDERAL [Concomitant]
     Route: 048
  9. ZEPHREX-LA [Concomitant]
     Dosage: REPORTED DOSAGE REGIMEN: 1 DOSE FORM IN THE MORNING, 1/2 DOSE FORM AT NIGHT.
     Route: 048
  10. AMBIEN [Concomitant]
     Dosage: TAKEN AT NIGHT.
     Route: 048
  11. PREMARIN [Concomitant]
     Dosage: FORM REPORTED AS VAGINAL CREAM.
  12. LIPITOR [Concomitant]
     Dosage: TAKEN AT NIGHT.
     Route: 048
  13. VITAMIN B/VITAMIN C [Concomitant]
     Route: 048
  14. MULTIVITAMIN NOS [Concomitant]
     Route: 048
  15. CALCIUM/VITAMIN D [Concomitant]
     Route: 048
  16. IRON [Concomitant]
     Dosage: TAKEN AT NIGHT.
     Route: 048

REACTIONS (2)
  - ANAPHYLACTIC SHOCK [None]
  - HYPERSENSITIVITY [None]
